FAERS Safety Report 24110202 (Version 1)
Quarter: 2024Q3

REPORT INFORMATION
  Report Type: Spontaneous
  Country: JP (occurrence: JP)
  Receive Date: 20240718
  Receipt Date: 20240718
  Transmission Date: 20241017
  Serious: Yes (Death, Hospitalization)
  Sender: PFIZER
  Company Number: JP-PFIZER INC-2021229786

PATIENT
  Age: 77 Year
  Sex: Female
  Weight: 63 kg

DRUGS (7)
  1. LORBRENA [Suspect]
     Active Substance: LORLATINIB
     Indication: Non-small cell lung cancer
     Dosage: 100 MG, DAILY
     Route: 048
     Dates: start: 20190904, end: 20190908
  2. LORBRENA [Suspect]
     Active Substance: LORLATINIB
     Dosage: 75 MG, DAILY
     Dates: start: 20190910, end: 20191007
  3. LORBRENA [Suspect]
     Active Substance: LORLATINIB
     Dosage: 75 MG, DAILY
     Dates: start: 20191018, end: 20191027
  4. LORBRENA [Suspect]
     Active Substance: LORLATINIB
     Dosage: 50 MG, DAILY
     Dates: start: 20191028, end: 20191111
  5. LORBRENA [Suspect]
     Active Substance: LORLATINIB
     Dosage: 25 MG, DAILY
     Dates: start: 20191223, end: 20200316
  6. LORBRENA [Suspect]
     Active Substance: LORLATINIB
     Dosage: 25 MG, DAILY
     Dates: start: 20200330
  7. ALUNBRIG [Concomitant]
     Active Substance: BRIGATINIB
     Dosage: 90 MG, DAILY
     Dates: start: 20210426, end: 20220902

REACTIONS (10)
  - Neoplasm progression [Fatal]
  - Depressed level of consciousness [Unknown]
  - Peripheral sensory neuropathy [Recovering/Resolving]
  - Oedema peripheral [Recovered/Resolved]
  - Nervous system disorder [Recovering/Resolving]
  - Blood triglycerides increased [Recovering/Resolving]
  - Blood cholesterol increased [Recovered/Resolved]
  - Pain in extremity [Not Recovered/Not Resolved]
  - Visual acuity reduced [Unknown]
  - Off label use [Unknown]

NARRATIVE: CASE EVENT DATE: 20190906
